FAERS Safety Report 10153770 (Version 1)
Quarter: 2014Q2

REPORT INFORMATION
  Report Type: Spontaneous
  Country: US (occurrence: US)
  Receive Date: 20140506
  Receipt Date: 20140506
  Transmission Date: 20141212
  Serious: No
  Sender: FDA-Public Use
  Company Number: US-BIOGENIDEC-2014BI031601

PATIENT
  Age: 44 Year
  Sex: Female

DRUGS (16)
  1. AVONEX [Suspect]
     Indication: MULTIPLE SCLEROSIS
     Route: 030
  2. AVONEX [Suspect]
     Indication: MULTIPLE SCLEROSIS
     Route: 030
     Dates: start: 20080401
  3. AVONEX [Suspect]
     Indication: MULTIPLE SCLEROSIS
     Route: 030
     Dates: start: 20140219
  4. AVONEX [Suspect]
     Indication: MULTIPLE SCLEROSIS
     Route: 030
     Dates: start: 20140414
  5. ALBUTEROL SULFATE [Concomitant]
  6. COLACE [Concomitant]
  7. CYMBALTA [Concomitant]
  8. FOLIC ACID [Concomitant]
  9. GLIPIZIDE ER [Concomitant]
  10. MECLIZINE HCL [Concomitant]
  11. METHADONE HCL [Concomitant]
  12. OXYBUTYNIN CHLORIDE ER [Concomitant]
  13. SINGULAIR [Concomitant]
  14. SOLU-MEDROL [Concomitant]
  15. SYNTHROID [Concomitant]
  16. VITAMIN D3 [Concomitant]

REACTIONS (4)
  - Injection site pain [Not Recovered/Not Resolved]
  - Burning sensation [Recovered/Resolved]
  - Anxiety [Unknown]
  - Pain [Recovered/Resolved with Sequelae]
